FAERS Safety Report 15592737 (Version 1)
Quarter: 2018Q4

REPORT INFORMATION
  Report Type: Spontaneous
  Country: IL (occurrence: IL)
  Receive Date: 20181106
  Receipt Date: 20181106
  Transmission Date: 20190205
  Serious: Yes (Hospitalization)
  Sender: FDA-Public Use
  Company Number: IL-SA-2018SA304695

PATIENT
  Age: 72 Year
  Sex: Female

DRUGS (1)
  1. CEREZYME [Suspect]
     Active Substance: IMIGLUCERASE
     Indication: GAUCHER^S DISEASE
     Dosage: UNK
     Route: 041

REACTIONS (5)
  - Electrocardiogram abnormal [Unknown]
  - Upper limb fracture [Unknown]
  - Fall [Unknown]
  - Dizziness [Unknown]
  - Hand fracture [Unknown]

NARRATIVE: CASE EVENT DATE: 20180411
